FAERS Safety Report 12326190 (Version 2)
Quarter: 2016Q2

REPORT INFORMATION
  Report Type: Report from Study
  Country: CA (occurrence: CA)
  Receive Date: 20160503
  Receipt Date: 20160524
  Transmission Date: 20160815
  Serious: Yes (Other)
  Sender: FDA-Public Use
  Company Number: CA-BRISTOL-MYERS SQUIBB COMPANY-BMS-2016-025076

PATIENT
  Sex: Female

DRUGS (1)
  1. ABATACEPT [Suspect]
     Active Substance: ABATACEPT
     Indication: RHEUMATOID ARTHRITIS
     Dosage: 125 MG, QWK
     Route: 058
     Dates: start: 20150521

REACTIONS (7)
  - Lower respiratory tract infection [Unknown]
  - Drug ineffective [Unknown]
  - Fungal infection [Recovering/Resolving]
  - Erythema [Unknown]
  - Cholecystectomy [Unknown]
  - Rash papular [Recovered/Resolved]
  - Arthropathy [Unknown]
